FAERS Safety Report 7764615-5 (Version None)
Quarter: 2011Q3

REPORT INFORMATION
  Report Type: 
  Country: None (occurrence: None)
  Receive Date: 20110921
  Receipt Date: 20110914
  Transmission Date: 20111222
  Serious: Yes (Hospitalization, Other)
  Sender: FDA-Public Use
  Company Number: PHEH2009US10727

PATIENT
  Sex: Female
  Weight: 59.22 kg

DRUGS (7)
  1. HYDROXYUREA [Concomitant]
     Dosage: 500 MG, QD
     Route: 048
  2. PERCOCET [Concomitant]
  3. EXJADE [Suspect]
     Indication: SICKLE CELL ANAEMIA
     Dosage: 1000 MG, QD
     Route: 048
     Dates: start: 20090810
  4. FOLIC ACID [Concomitant]
     Dosage: 1 MG, QD
     Route: 048
  5. MULTI-VITAMINS [Concomitant]
  6. OXYCODONE HCL [Concomitant]
  7. ESTRACE [Concomitant]
     Route: 048

REACTIONS (12)
  - PYREXIA [None]
  - WHITE BLOOD CELL COUNT INCREASED [None]
  - BLOOD CHLORIDE INCREASED [None]
  - OCULAR ICTERUS [None]
  - VOMITING [None]
  - MALAISE [None]
  - BLOOD BILIRUBIN INCREASED [None]
  - BLOOD CALCIUM DECREASED [None]
  - CHEST PAIN [None]
  - BACK PAIN [None]
  - NAUSEA [None]
  - SICKLE CELL ANAEMIA WITH CRISIS [None]
